FAERS Safety Report 19995407 (Version 1)
Quarter: 2021Q4

REPORT INFORMATION
  Report Type: Spontaneous
  Country: US (occurrence: US)
  Receive Date: 20211025
  Receipt Date: 20211025
  Transmission Date: 20220303
  Serious: Yes (Other)
  Sender: FDA-Public Use
  Company Number: US-GLAXOSMITHKLINE-US2021GSK221366

PATIENT
  Sex: Female

DRUGS (6)
  1. RANITIDINE [Suspect]
     Active Substance: RANITIDINE
     Indication: Urticaria chronic
     Dosage: UNK UNK, QD
     Route: 065
     Dates: start: 201812, end: 201910
  2. ZANTAC [Suspect]
     Active Substance: RANITIDINE HYDROCHLORIDE
     Indication: Urticaria chronic
     Dosage: UNK UNK, QD
     Route: 065
     Dates: start: 201812, end: 201910
  3. ZANTAC [Suspect]
     Active Substance: RANITIDINE HYDROCHLORIDE
     Indication: Urticaria chronic
     Dosage: UNK UNK, QD
     Route: 065
     Dates: start: 201812, end: 201910
  4. RANITIDINE [Suspect]
     Active Substance: RANITIDINE
     Indication: Urticaria chronic
     Dosage: UNK UNK, QD
     Route: 065
     Dates: start: 201812, end: 201910
  5. RANITIDINE [Suspect]
     Active Substance: RANITIDINE
     Indication: Urticaria chronic
     Dosage: UNK, QD
     Route: 065
     Dates: start: 201812, end: 201910
  6. RANITIDINE [Suspect]
     Active Substance: RANITIDINE
     Indication: Urticaria chronic
     Dosage: UNK, QD
     Route: 065
     Dates: start: 201812, end: 201910

REACTIONS (1)
  - Hepatic cancer [Unknown]
